FAERS Safety Report 7627193-7 (Version None)
Quarter: 2011Q3

REPORT INFORMATION
  Report Type: 
  Country: None (occurrence: None)
  Receive Date: 20110721
  Receipt Date: 20110719
  Transmission Date: 20111222
  Serious: Yes (Other)
  Sender: FDA-Public Use
  Company Number: GB-PFIZER INC-2011139562

PATIENT
  Age: 77 Year
  Sex: Female

DRUGS (2)
  1. VANCOMYCIN HCL [Suspect]
     Indication: WOUND INFECTION
     Dosage: 1 G, 2X/DAY
     Route: 042
  2. FUROSEMIDE [Suspect]
     Indication: OEDEMA PERIPHERAL
     Dosage: 40 MG
     Route: 048

REACTIONS (3)
  - CARDIAC ARREST [None]
  - HYPOKALAEMIA [None]
  - DRUG INTERACTION [None]
